FAERS Safety Report 6092815-1 (Version None)
Quarter: 2009Q1

REPORT INFORMATION
  Report Type: 
  Country: None (occurrence: None)
  Receive Date: 20090225
  Receipt Date: 20090213
  Transmission Date: 20090719
  Serious: Yes (Hospitalization)
  Sender: FDA-Public Use
  Company Number: ZA-ELI_LILLY_AND_COMPANY-ZA200902004013

PATIENT
  Age: 92 Year
  Sex: Male

DRUGS (3)
  1. ZYPREXA [Suspect]
     Route: 048
  2. REMERON [Concomitant]
     Dosage: 300 MG, UNK
  3. CYMBALTA [Concomitant]
     Dosage: 60 MG, UNK

REACTIONS (3)
  - BONE MARROW FAILURE [None]
  - HOSPITALISATION [None]
  - PLATELET COUNT DECREASED [None]
